FAERS Safety Report 21102175 (Version 1)
Quarter: 2022Q3

REPORT INFORMATION
  Report Type: Spontaneous
  Country: JP (occurrence: JP)
  Receive Date: 20220719
  Receipt Date: 20220719
  Transmission Date: 20221027
  Serious: Yes (Other)
  Sender: FDA-Public Use
  Company Number: JP-NOVARTISPH-NVSC2022JP163555

PATIENT
  Age: 67 Year
  Sex: Female

DRUGS (1)
  1. RECLAST [Suspect]
     Active Substance: ZOLEDRONIC ACID
     Indication: Product used for unknown indication
     Dosage: 5 MG, Q12MO
     Route: 041
     Dates: start: 20180611

REACTIONS (3)
  - Osteonecrosis of jaw [Unknown]
  - Periodontitis [Unknown]
  - Dental cyst [Unknown]
